FAERS Safety Report 19922156 (Version 1)
Quarter: 2021Q4

REPORT INFORMATION
  Report Type: Report from Study
  Country: PA (occurrence: PA)
  Receive Date: 20211005
  Receipt Date: 20211005
  Transmission Date: 20220303
  Serious: Yes (Other)
  Sender: FDA-Public Use
  Company Number: PA-NOVARTISPH-NVSC2021PA223837

PATIENT
  Age: 85 Year
  Sex: Female

DRUGS (1)
  1. DIOVAN [Suspect]
     Active Substance: VALSARTAN
     Indication: Product used for unknown indication
     Dosage: 80 MG (20 YEARS AGO)
     Route: 065

REACTIONS (5)
  - Hypoxia [Unknown]
  - Cardiac failure [Unknown]
  - Hypertension [Unknown]
  - Peripheral swelling [Unknown]
  - Fatigue [Unknown]
